FAERS Safety Report 9721223 (Version 2)
Quarter: 2014Q1

REPORT INFORMATION
  Report Type: Spontaneous
  Country: US (occurrence: US)
  Receive Date: 20131129
  Receipt Date: 20140321
  Transmission Date: 20141002
  Serious: Yes (Other)
  Sender: FDA-Public Use
  Company Number: US-PFIZER INC-2013338209

PATIENT
  Age: 64 Year
  Sex: Female
  Weight: 68 kg

DRUGS (6)
  1. PREMARIN [Suspect]
     Indication: MENOPAUSAL SYMPTOMS
     Dosage: 0.3 MG, 1X/DAY
     Route: 048
  2. PREMARIN [Suspect]
     Dosage: 0.45 MG, 1X/DAY
     Route: 048
  3. PREMARIN [Suspect]
     Dosage: 0.625 MG, 1X/DAY
     Route: 048
  4. LIPITOR [Concomitant]
     Dosage: 10 MG, UNK
  5. ASPIRIN [Concomitant]
     Dosage: UNK
  6. ZOCOR [Concomitant]
     Dosage: 20 MG, 1X/DAY AT BED TIME

REACTIONS (15)
  - Urinary tract infection [Unknown]
  - Coronary artery disease [Unknown]
  - Haemorrhoids thrombosed [Unknown]
  - Hiatus hernia [Unknown]
  - Gastrooesophageal reflux disease [Unknown]
  - Acquired oesophageal web [Unknown]
  - Dysphagia [Unknown]
  - Dyspnoea [Unknown]
  - Chest pain [Unknown]
  - Proctalgia [Unknown]
  - Dysuria [Unknown]
  - Pollakiuria [Unknown]
  - Headache [Unknown]
  - Epistaxis [Recovered/Resolved]
  - Skin lesion [Unknown]
